FAERS Safety Report 4353941-8 (Version None)
Quarter: 2004Q2

REPORT INFORMATION
  Report Type: 
  Country: None (occurrence: None)
  Receive Date: 20040506
  Receipt Date: 20040203
  Transmission Date: 20050107
  Serious: No
  Sender: FDA-Public Use
  Company Number: US-GLAXOSMITHKLINE-A0496334A

PATIENT
  Age: 35 Year
  Sex: Female

DRUGS (7)
  1. AVANDAMET [Suspect]
     Route: 048
  2. GLYBURIDE [Concomitant]
  3. FLOVENT [Concomitant]
  4. SEREVENT [Concomitant]
  5. ALBUTEROL [Concomitant]
  6. PRILOSEC [Concomitant]
  7. DIPROLENE [Concomitant]

REACTIONS (1)
  - WEIGHT INCREASED [None]
